FAERS Safety Report 22296075 (Version 1)
Quarter: 2023Q2

REPORT INFORMATION
  Report Type: Spontaneous
  Country: US (occurrence: US)
  Receive Date: 20230508
  Receipt Date: 20230508
  Transmission Date: 20230721
  Serious: No
  Sender: FDA-Public Use
  Company Number: US-JNJFOC-20230514230

PATIENT
  Age: 66 Year
  Sex: Male

DRUGS (28)
  1. TOPAMAX [Suspect]
     Active Substance: TOPIRAMATE
     Indication: Seizure
     Route: 048
  2. SIMPONI [Concomitant]
     Active Substance: GOLIMUMAB
     Indication: Rheumatoid arthritis
  3. CLONAZEPAM [Concomitant]
     Active Substance: CLONAZEPAM
  4. CYCLOBENZAPRINE [Concomitant]
     Active Substance: CYCLOBENZAPRINE
  5. CARBIDOPA\LEVODOPA [Concomitant]
     Active Substance: CARBIDOPA\LEVODOPA
     Indication: Dystonia
     Dosage: 25/100 (MG MILLIGRAM(S) )
  6. BACLOFEN [Concomitant]
     Active Substance: BACLOFEN
  7. ATORVASTATIN [Concomitant]
     Active Substance: ATORVASTATIN
  8. TRIHEXYPHENIDYL [Concomitant]
     Active Substance: TRIHEXYPHENIDYL
  9. METHOTREXATE [Concomitant]
     Active Substance: METHOTREXATE
  10. MIRTAZAPINE [Concomitant]
     Active Substance: MIRTAZAPINE
  11. FOLIC ACID [Concomitant]
     Active Substance: FOLIC ACID
  12. LOSARTAN [Concomitant]
     Active Substance: LOSARTAN
  13. TRAMADOL [Concomitant]
     Active Substance: TRAMADOL
  14. TETRACYCLINE HYDROCHLORIDE [Concomitant]
     Active Substance: TETRACYCLINE HYDROCHLORIDE
  15. ACIDOPHILUS [Concomitant]
     Active Substance: LACTOBACILLUS ACIDOPHILUS
  16. HERBALS\WITHANIA SOMNIFERA ROOT [Concomitant]
     Active Substance: HERBALS\WITHANIA SOMNIFERA ROOT
     Indication: Anxiety
  17. BOTOX [Concomitant]
     Active Substance: ONABOTULINUMTOXINA
  18. VITAMIN D3 [Concomitant]
     Active Substance: CHOLECALCIFEROL
     Dosage: 25 (G MICROGRAM(S)
  19. OXITRIPTAN [Concomitant]
     Active Substance: OXITRIPTAN
  20. STOOL SOFTENER (DOCUSATE) [Concomitant]
     Active Substance: DOCUSATE
     Indication: Constipation
  21. DIPHENHYDRAMINE [Concomitant]
     Active Substance: DIPHENHYDRAMINE
     Indication: Hypersensitivity
     Dosage: AS REQUIRED
  22. AFRIN [OXYMETAZOLINE] [Concomitant]
     Indication: Hypersensitivity
  23. COVID-19 VACCINE [Concomitant]
     Indication: COVID-19 prophylaxis
     Dates: start: 20210331, end: 20210331
  24. COVID-19 VACCINE [Concomitant]
     Dates: start: 20210401, end: 20210401
  25. COVID-19 VACCINE [Concomitant]
     Dates: start: 20211027, end: 20211027
  26. COVID-19 VACCINE [Concomitant]
     Dates: start: 20220512, end: 20220512
  27. COVID-19 VACCINE [Concomitant]
     Dates: start: 20221201, end: 20221201
  28. INFLUENZA VIRUS VACCINE [Concomitant]
     Active Substance: INFLUENZA VIRUS VACCINE
     Dates: start: 20221201, end: 20221201

REACTIONS (1)
  - Insomnia [Unknown]
